FAERS Safety Report 17562048 (Version 4)
Quarter: 2020Q3

REPORT INFORMATION
  Report Type: Spontaneous
  Country: GB (occurrence: GB)
  Receive Date: 20200319
  Receipt Date: 20200831
  Transmission Date: 20201102
  Serious: Yes (Death, Life-Threatening, Congenital Anomaly, Other)
  Sender: FDA-Public Use
  Company Number: GB-JNJFOC-20200313545

PATIENT

DRUGS (1)
  1. OVEX [Suspect]
     Active Substance: MEBENDAZOLE
     Indication: HELMINTHIC INFECTION
     Dosage: IN TOTAL ON SUBSEQUENT DAYS
     Route: 064
     Dates: start: 20190701, end: 20190702

REACTIONS (3)
  - Stillbirth [Fatal]
  - Abdominal wall anomaly [Not Recovered/Not Resolved]
  - Foetal exposure during pregnancy [Unknown]

NARRATIVE: CASE EVENT DATE: 20190701
